FAERS Safety Report 11129987 (Version 2)
Quarter: 2015Q2

REPORT INFORMATION
  Report Type: Report from Study
  Country: US (occurrence: US)
  Receive Date: 20150521
  Receipt Date: 20150613
  Transmission Date: 20150821
  Serious: Yes (Hospitalization)
  Sender: FDA-Public Use
  Company Number: PHEH2015US008768

PATIENT
  Sex: Male
  Weight: 97.52 kg

DRUGS (5)
  1. GLIPIZIDE. [Concomitant]
     Active Substance: GLIPIZIDE
     Indication: DIABETES MELLITUS
     Dosage: UNK
     Route: 065
  2. METFORMIN [Concomitant]
     Active Substance: METFORMIN HYDROCHLORIDE
     Indication: DIABETES MELLITUS
     Dosage: UNK
     Route: 065
  3. PREDNISONE. [Concomitant]
     Active Substance: PREDNISONE
     Indication: UNDERWEIGHT
     Dosage: UNK
     Route: 065
  4. GILENYA [Suspect]
     Active Substance: FINGOLIMOD HYDROCHLORIDE
     Indication: MULTIPLE SCLEROSIS
     Dosage: 0.5 MG, QD
     Route: 048
     Dates: start: 20141211
  5. SOLU-MEDROL [Concomitant]
     Active Substance: METHYLPREDNISOLONE SODIUM SUCCINATE
     Indication: UNDERWEIGHT
     Dosage: UNK
     Route: 065

REACTIONS (22)
  - Exostosis [Unknown]
  - Tremor [Unknown]
  - Drooling [Unknown]
  - Fall [Not Recovered/Not Resolved]
  - Aspartate aminotransferase increased [Unknown]
  - Fatigue [Not Recovered/Not Resolved]
  - Alanine aminotransferase increased [Unknown]
  - Balance disorder [Not Recovered/Not Resolved]
  - Hypersomnia [Not Recovered/Not Resolved]
  - Weight decreased [Recovering/Resolving]
  - Dizziness [Not Recovered/Not Resolved]
  - Multiple sclerosis relapse [Unknown]
  - Seizure [Unknown]
  - Temperature intolerance [Unknown]
  - Weight increased [Unknown]
  - Diplopia [Unknown]
  - Eye movement disorder [Unknown]
  - Contusion [Not Recovered/Not Resolved]
  - Musculoskeletal pain [Unknown]
  - Memory impairment [Unknown]
  - Hunger [Unknown]
  - Back pain [Unknown]
